FAERS Safety Report 9918134 (Version 2)
Quarter: 2014Q2

REPORT INFORMATION
  Report Type: Spontaneous
  Country: US (occurrence: US)
  Receive Date: 20140223
  Receipt Date: 20140411
  Transmission Date: 20141212
  Serious: No
  Sender: FDA-Public Use
  Company Number: US-ROXANE LABORATORIES, INC.-2014-RO-00258RO

PATIENT
  Age: 63 Year
  Sex: Male
  Weight: 61 kg

DRUGS (4)
  1. IPRATROPIUM BROMIDE NASAL SOLUTION, 0.06% [Suspect]
     Indication: NASAL CONGESTION
     Route: 045
     Dates: start: 20140102, end: 20140108
  2. IPRATROPIUM BROMIDE NASAL SOLUTION, 0.06% [Suspect]
     Indication: EAR INFECTION
  3. AMOX CLAVULANATE [Concomitant]
     Indication: EAR INFECTION
     Route: 065
     Dates: start: 20140102, end: 20140112
  4. TRAMADOL [Concomitant]
     Indication: EAR PAIN
     Route: 065
     Dates: start: 20140102

REACTIONS (1)
  - Dysuria [Recovered/Resolved]
